FAERS Safety Report 13393438 (Version 1)
Quarter: 2017Q1

REPORT INFORMATION
  Report Type: Spontaneous
  Country: US (occurrence: US)
  Receive Date: 20170331
  Receipt Date: 20170331
  Transmission Date: 20170429
  Serious: Yes (Other)
  Sender: FDA-Public Use
  Company Number: US-PFIZER INC-2017135134

PATIENT
  Age: 15 Year
  Sex: Female
  Weight: 86 kg

DRUGS (1)
  1. MEDROXYPROGESTERONE ACETATE. [Suspect]
     Active Substance: MEDROXYPROGESTERONE ACETATE
     Indication: CONTRACEPTION
     Dosage: 1 DF, EVERY 3 MONTHS (1 EVERY 3 MONTHS)
     Dates: start: 20160428

REACTIONS (2)
  - Skin striae [Unknown]
  - Weight increased [Unknown]
